FAERS Safety Report 9077129 (Version 1)
Quarter: 2013Q1

REPORT INFORMATION
  Report Type: Report from Study
  Country: US (occurrence: US)
  Receive Date: 20130129
  Receipt Date: 20130129
  Transmission Date: 20140127
  Serious: No
  Sender: FDA-Public Use
  Company Number: US-ABBOTT-12P-163-0946295-00

PATIENT
  Age: 41 Year
  Sex: Male

DRUGS (4)
  1. HUMIRA 40 MG/0.8 ML PEN [Suspect]
     Indication: CROHN^S DISEASE
  2. ENTOCORT [Concomitant]
     Indication: CROHN^S DISEASE
  3. ADVAIR [Concomitant]
     Indication: HYPERSENSITIVITY
     Dosage: DALIY
  4. FLONASE [Concomitant]
     Indication: HYPERSENSITIVITY
     Dosage: 1 SPRAY EACH NOSTRIL/ DAILY

REACTIONS (4)
  - Unevaluable event [Unknown]
  - Injection site haemorrhage [Recovered/Resolved]
  - Incorrect dose administered [Unknown]
  - Wrong technique in drug usage process [Unknown]
